FAERS Safety Report 9384883 (Version 3)
Quarter: 2013Q3

REPORT INFORMATION
  Report Type: Spontaneous
  Country: FR (occurrence: None)
  Receive Date: 20130701
  Receipt Date: 20130807
  Transmission Date: 20140515
  Serious: Yes (Hospitalization)
  Sender: FDA-Public Use
  Company Number: ACO_37002_2013

PATIENT
  Age: 49 Year
  Sex: Female

DRUGS (2)
  1. FAMPYRA [Suspect]
     Indication: GAIT DISTURBANCE
     Route: 048
     Dates: start: 20130513, end: 20130608
  2. GILENYA (FINGOLIMOD HYDROCHLORIDE) [Concomitant]

REACTIONS (5)
  - Status epilepticus [None]
  - Insomnia [None]
  - Grand mal convulsion [None]
  - Postictal state [None]
  - Ataxia [None]
